FAERS Safety Report 4638046-0 (Version None)
Quarter: 2005Q2

REPORT INFORMATION
  Report Type: 
  Country: None (occurrence: None)
  Receive Date: 20050415
  Receipt Date: 20050408
  Transmission Date: 20051028
  Serious: Yes (Hospitalization)
  Sender: FDA-Public Use
  Company Number: US-2005-002497

PATIENT
  Age: 35 Year
  Sex: Female

DRUGS (1)
  1. BETASERON [Suspect]
     Indication: RELAPSING-REMITTING MULTIPLE SCLEROSIS
     Dosage: 8 MIU,  EVERY 2D, SUBCUTANEOUS
     Route: 058
     Dates: start: 20040729

REACTIONS (1)
  - HEPATIC ENZYME INCREASED [None]
